FAERS Safety Report 10412235 (Version 1)
Quarter: 2014Q2

REPORT INFORMATION
  Report Type: Spontaneous
  Country: US (occurrence: None)
  Receive Date: 20140604
  Receipt Date: 20140604
  Transmission Date: 20141212
  Serious: Yes (Other)
  Sender: FDA-Public Use
  Company Number: 163-POMAL-14044718

PATIENT
  Age: 72 Year
  Sex: Male
  Weight: 70.2 kg

DRUGS (7)
  1. POMALYST (POMALIDOMIDE) (3 MILLIGRAM, CAPSULES) [Suspect]
     Indication: PLASMA CELL MYELOMA
     Route: 048
     Dates: start: 20140213
  2. ACYCLOVIR (ACICLOVIR) (ACICLOVIR) [Concomitant]
  3. ASCORBIC ACID [Concomitant]
  4. ASPIRIN (ACETYLSALICYLIC ACID) (ENTERIC-COATED TABLET) [Concomitant]
  5. PANCREALIPASE (CAPSULES) [Concomitant]
  6. OMEPRAZOLE [Concomitant]
  7. BENDAMUSTINE [Concomitant]

REACTIONS (1)
  - Neutropenia [None]
